FAERS Safety Report 17878186 (Version 5)
Quarter: 2020Q4

REPORT INFORMATION
  Report Type: Spontaneous
  Country: ES (occurrence: ES)
  Receive Date: 20200610
  Receipt Date: 20201003
  Transmission Date: 20210113
  Serious: Yes (Other)
  Sender: FDA-Public Use
  Company Number: ES-AUROBINDO-AUR-APL-2020-027902

PATIENT
  Age: 46 Year
  Sex: Male

DRUGS (16)
  1. PRAVASTATIN TABLET [Interacting]
     Active Substance: PRAVASTATIN
     Indication: PRODUCT USED FOR UNKNOWN INDICATION
     Dosage: 40 MILLIGRAM, ONCE A DAY
     Route: 065
  2. PARACETAMOL;TRAMADOL [Concomitant]
     Active Substance: ACETAMINOPHEN\TRAMADOL
     Indication: CHEST PAIN
     Dosage: 3 DOSAGE FORM, ONCE A DAY (1/1/1/0)
     Route: 065
  3. FENTANYL. [Concomitant]
     Active Substance: FENTANYL
     Indication: CHEST PAIN
     Dosage: 200 MICROGRAM, ONCE A DAY, 0/0/0/1
     Route: 002
  4. METFORMINA [Concomitant]
     Active Substance: METFORMIN HYDROCHLORIDE
     Indication: TYPE 2 DIABETES MELLITUS
     Dosage: 1700 MILLIGRAM, ONCE A DAY (1/0/1/0)
     Route: 065
  5. AMITRIPTYLINE [Concomitant]
     Active Substance: AMITRIPTYLINE
     Indication: DEPRESSION
     Dosage: 25 MILLIGRAM, ONCE A DAY (0/0/0/1)
     Route: 065
  6. ENALAPRIL;HYDROCHLOROTHIAZIDE [Concomitant]
     Active Substance: ENALAPRIL\HYDROCHLOROTHIAZIDE
     Indication: HYPERTENSION
     Dosage: 1 DOSAGE FORM, ONCE A DAY (1/0/0/0)
     Route: 065
  7. METAMIZOL [Concomitant]
     Active Substance: METAMIZOLE SODIUM
     Indication: CHEST PAIN
     Dosage: 575 MILLIGRAM, ONCE A DAY (0/1/0/0)
     Route: 065
  8. FENTANYL. [Interacting]
     Active Substance: FENTANYL
     Indication: CHEST PAIN
     Dosage: 200 MICROGRAM, ONCE A DAY (0/0/0/1)
     Route: 002
  9. BUPRENORPHINE. [Interacting]
     Active Substance: BUPRENORPHINE
     Indication: CHEST PAIN
     Dosage: 52.5 MICROGRAM, 72 HOUR (1/72H )
     Route: 065
  10. PRAVAFENIX [Interacting]
     Active Substance: FENOFIBRATE\PRAVASTATIN
     Indication: HYPERCHOLESTEROLAEMIA
     Dosage: 1 DOSAGE FORM, ONCE A DAY
     Route: 065
     Dates: start: 2019
  11. LORAZEPAM. [Concomitant]
     Active Substance: LORAZEPAM
     Indication: ANXIETY
     Dosage: 1 MILLIGRAM, AS REQUIRED
     Route: 065
  12. PARACETAMOL STADA [Concomitant]
     Active Substance: ACETAMINOPHEN
     Indication: CHEST PAIN
     Dosage: 1 GRAM, ONCE A DAY (1/0/0/0)
     Route: 065
  13. PREGABALINA [Concomitant]
     Active Substance: PREGABALIN
     Indication: CHEST PAIN
     Dosage: 450 MILLIGRAM, ONCE A DAY (1/1/1/0)
     Route: 065
  14. FENOFIBRATE. [Interacting]
     Active Substance: FENOFIBRATE
     Indication: PRODUCT USED FOR UNKNOWN INDICATION
     Dosage: 160 MILLIGRAM, ONCE A DAY
     Route: 065
     Dates: end: 2019
  15. EZETIMIBE 10 MG [Suspect]
     Active Substance: EZETIMIBE
     Indication: HYPERCHOLESTEROLAEMIA
     Dosage: 10 MILLIGRAM, ONCE A DAY (0/0/1/0)(3 MONTHS)
     Route: 065
  16. ETORICOXIB. [Concomitant]
     Active Substance: ETORICOXIB
     Indication: CHEST PAIN
     Dosage: 90 MILLIGRAM, ONCE A DAY (1/0/0/0)
     Route: 065

REACTIONS (4)
  - Gamma-glutamyltransferase increased [Recovered/Resolved]
  - Anxiety [Unknown]
  - Hepatic enzyme increased [Recovering/Resolving]
  - Drug interaction [Unknown]
